FAERS Safety Report 20468936 (Version 1)
Quarter: 2022Q1

REPORT INFORMATION
  Report Type: Spontaneous
  Country: US (occurrence: US)
  Receive Date: 20220214
  Receipt Date: 20220214
  Transmission Date: 20220424
  Serious: Yes (Other)
  Sender: FDA-Public Use
  Company Number: US-GLAXOSMITHKLINE-US2022GSK025631

PATIENT
  Sex: Male

DRUGS (8)
  1. ZANTAC [Suspect]
     Active Substance: RANITIDINE HYDROCHLORIDE
     Indication: Dyspepsia
     Dosage: 150 MG BOTH
     Route: 065
     Dates: start: 199801, end: 201501
  2. ZANTAC [Suspect]
     Active Substance: RANITIDINE HYDROCHLORIDE
     Dosage: 300 MG, BID
     Route: 065
     Dates: start: 199801, end: 201501
  3. ZANTAC [Suspect]
     Active Substance: RANITIDINE HYDROCHLORIDE
     Indication: Dyspepsia
     Dosage: 150 MG BOTH
     Route: 065
     Dates: start: 199801, end: 201501
  4. ZANTAC [Suspect]
     Active Substance: RANITIDINE HYDROCHLORIDE
     Dosage: 300 MG, BID
     Route: 065
     Dates: start: 199801, end: 201501
  5. RANITIDINE [Suspect]
     Active Substance: RANITIDINE
     Indication: Dyspepsia
     Dosage: 150 MG PRESCRIPTION
     Route: 065
     Dates: start: 199801, end: 201501
  6. RANITIDINE [Suspect]
     Active Substance: RANITIDINE
     Dosage: 300 MG, BID
     Route: 065
     Dates: start: 199801, end: 201501
  7. RANITIDINE [Suspect]
     Active Substance: RANITIDINE
     Indication: Dyspepsia
     Dosage: 150 MG PRESCRIPTION
     Route: 065
     Dates: start: 199801, end: 201501
  8. RANITIDINE [Suspect]
     Active Substance: RANITIDINE
     Dosage: 300 MG, BID
     Route: 065
     Dates: start: 199801, end: 201501

REACTIONS (1)
  - Prostate cancer [Unknown]
